FAERS Safety Report 10424767 (Version 1)
Quarter: 2014Q3

REPORT INFORMATION
  Report Type: Spontaneous
  Country: US (occurrence: None)
  Receive Date: 20140725
  Receipt Date: 20140725
  Transmission Date: 20150326
  Serious: No
  Sender: FDA-Public Use
  Company Number: AP356-00676-SPO-US

PATIENT
  Age: 52 Year
  Sex: Female
  Weight: 98 kg

DRUGS (5)
  1. BIOTIN [Concomitant]
     Active Substance: BIOTIN
  2. BELVIQ [Suspect]
     Active Substance: LORCASERIN HYDROCHLORIDE
     Indication: WEIGHT DECREASED
     Route: 048
     Dates: start: 201403, end: 201403
  3. MULTIVITAMIN (MULTIVITAMINS) [Concomitant]
  4. PROZAC (FLUOXETINE) [Concomitant]
  5. PRILOSEC (OMEPRAZOLE) [Concomitant]
     Active Substance: OMEPRAZOLE MAGNESIUM

REACTIONS (2)
  - Intentional underdose [None]
  - Headache [None]

NARRATIVE: CASE EVENT DATE: 20140314
